FAERS Safety Report 8028895-3 (Version None)
Quarter: 2012Q1

REPORT INFORMATION
  Report Type: 
  Country: None (occurrence: None)
  Receive Date: 20120106
  Receipt Date: 20111209
  Transmission Date: 20120608
  Serious: Yes (Hospitalization)
  Sender: FDA-Public Use
  Company Number: JP-GLAXOSMITHKLINE-B0768964A

PATIENT
  Sex: Female

DRUGS (6)
  1. CHINESE MEDICINE [Concomitant]
     Dosage: 3IUAX PER DAY
     Route: 048
     Dates: start: 20111026, end: 20111215
  2. CLONAZEPAM [Concomitant]
     Indication: MANIA
     Dosage: 1MG PER DAY
     Route: 048
  3. LAMICTAL [Suspect]
     Indication: BIPOLAR I DISORDER
     Dosage: 25MG PER DAY
     Route: 048
     Dates: start: 20111101
  4. LAMICTAL [Suspect]
     Dosage: 50MG PER DAY
     Route: 048
     Dates: end: 20111205
  5. ZOLPIDEM [Concomitant]
     Dosage: 10MG PER DAY
     Route: 048
  6. SEROQUEL [Concomitant]
     Indication: MANIA
     Dosage: 200MG PER DAY
     Route: 048

REACTIONS (5)
  - MANIA [None]
  - IRRITABILITY [None]
  - MENTAL DISORDER [None]
  - LOGORRHOEA [None]
  - ANGER [None]
